FAERS Safety Report 17615328 (Version 4)
Quarter: 2021Q2

REPORT INFORMATION
  Report Type: Spontaneous
  Country: US (occurrence: US)
  Receive Date: 20200402
  Receipt Date: 20210510
  Transmission Date: 20210716
  Serious: Yes (Other)
  Sender: FDA-Public Use
  Company Number: US-ROCHE-2573136

PATIENT
  Age: 76 Year
  Sex: Female

DRUGS (4)
  1. ZILOVERTAMAB. [Concomitant]
     Active Substance: ZILOVERTAMAB
     Indication: CHRONIC LYMPHOCYTIC LEUKAEMIA
  2. GAZYVA [Suspect]
     Active Substance: OBINUTUZUMAB
     Dosage: TOOK FOR 3 ROUNDS
     Route: 042
     Dates: start: 201901
  3. GAZYVA [Suspect]
     Active Substance: OBINUTUZUMAB
     Route: 042
     Dates: start: 201703, end: 201708
  4. GAZYVA [Suspect]
     Active Substance: OBINUTUZUMAB
     Indication: CHRONIC LYMPHOCYTIC LEUKAEMIA
     Route: 042
     Dates: start: 20120404, end: 20120807

REACTIONS (6)
  - Chronic lymphocytic leukaemia [Unknown]
  - Autoimmune haemolytic anaemia [Recovered/Resolved]
  - Coronavirus infection [Unknown]
  - Fatigue [Recovered/Resolved]
  - Drug ineffective [Unknown]
  - Somnolence [Recovered/Resolved]

NARRATIVE: CASE EVENT DATE: 202002
